FAERS Safety Report 9177707 (Version 2)
Quarter: 2013Q2

REPORT INFORMATION
  Report Type: Report from Study
  Country: US (occurrence: US)
  Receive Date: 20121005
  Receipt Date: 20130411
  Transmission Date: 20140414
  Serious: Yes (Other)
  Sender: FDA-Public Use
  Company Number: US-RB-023169-11

PATIENT
  Age: 37 Year
  Sex: Female

DRUGS (4)
  1. SUBOXONE TABLET [Suspect]
     Indication: PAIN MANAGEMENT
     Route: 065
     Dates: end: 2011
  2. METHADONE [Suspect]
     Indication: PAIN MANAGEMENT
     Route: 065
     Dates: start: 2011
  3. FENTANYL PATCHES [Suspect]
     Indication: PAIN MANAGEMENT
     Dosage: 50 MG/2 DAYS
     Route: 065
  4. PERCOCET [Suspect]
     Indication: PAIN MANAGEMENT
     Route: 065

REACTIONS (5)
  - Exposure during pregnancy [Recovered/Resolved]
  - Off label use [Recovered/Resolved]
  - Premature delivery [Recovered/Resolved]
  - Pre-eclampsia [Recovered/Resolved]
  - Premature rupture of membranes [Recovered/Resolved]
